FAERS Safety Report 7387994-X (Version None)
Quarter: 2011Q2

REPORT INFORMATION
  Report Type: 
  Country: None (occurrence: None)
  Receive Date: 20110401
  Receipt Date: 20110329
  Transmission Date: 20111010
  Serious: Yes (Life-Threatening, Hospitalization, Other)
  Sender: FDA-Public Use
  Company Number: UA-TEVA-XM22-04-261423GER

PATIENT
  Sex: Male
  Weight: 60 kg

DRUGS (18)
  1. FUROSEMIDE [Concomitant]
     Route: 042
     Dates: start: 20101220, end: 20101220
  2. ZOFRAN [Concomitant]
     Indication: PROPHYLAXIS OF NAUSEA AND VOMITING
     Route: 042
     Dates: start: 20101129, end: 20101129
  3. ZOFRAN [Concomitant]
     Route: 042
     Dates: start: 20101220, end: 20101222
  4. DEXAMETHASONE [Concomitant]
     Indication: PROPHYLAXIS OF NAUSEA AND VOMITING
     Route: 042
     Dates: start: 20101129, end: 20101129
  5. SOLUTIO NATRII CHLORIDI [Concomitant]
     Route: 042
     Dates: start: 20101220, end: 20101220
  6. XM22 PEG-FILGRASTIM [Suspect]
     Indication: COLONY STIMULATING FACTOR PROPHYLAXIS
     Dosage: BLINDED XM22 6 MG OR PLACEBO
     Route: 058
     Dates: start: 20101202, end: 20101202
  7. FUROSEMIDE [Concomitant]
     Indication: FLUID RETENTION
     Route: 042
     Dates: start: 20101129, end: 20101129
  8. DEXAMETHASONE [Concomitant]
     Route: 042
     Dates: start: 20101129, end: 20101201
  9. XM22 PEG-FILGRASTIM [Suspect]
     Dosage: BLINDED XM22 6 MG OR PLACEBO
     Route: 058
     Dates: start: 20101223, end: 20101223
  10. ETOPOSIDE [Suspect]
     Indication: NON-SMALL CELL LUNG CANCER
     Route: 041
     Dates: start: 20101129, end: 20101201
  11. ZOFRAN [Concomitant]
     Route: 042
     Dates: start: 20101129, end: 20101201
  12. DEXAMETHASONE [Concomitant]
     Route: 042
     Dates: start: 20101220, end: 20101220
  13. ZOFRAN [Concomitant]
     Route: 042
     Dates: start: 20101220, end: 20101220
  14. CISPLATIN [Suspect]
     Route: 041
     Dates: start: 20101220, end: 20101220
  15. ETOPOSIDE [Suspect]
     Route: 041
     Dates: start: 20101220, end: 20101222
  16. DEXAMETHASONE [Concomitant]
     Route: 042
     Dates: start: 20101220, end: 20101222
  17. SOLUTIO NATRII CHLORIDI [Concomitant]
     Indication: FLUID REPLACEMENT
     Route: 042
     Dates: start: 20101129, end: 20101129
  18. CISPLATIN [Suspect]
     Indication: NON-SMALL CELL LUNG CANCER
     Route: 041
     Dates: start: 20101129, end: 20101129

REACTIONS (1)
  - PULMONARY EMBOLISM [None]
